FAERS Safety Report 20472155 (Version 1)
Quarter: 2022Q1

REPORT INFORMATION
  Report Type: Report from Study
  Country: CO (occurrence: CO)
  Receive Date: 20220214
  Receipt Date: 20220214
  Transmission Date: 20220423
  Serious: Yes (Hospitalization)
  Sender: FDA-Public Use
  Company Number: CO-ABBVIE-22K-036-4277443-00

PATIENT
  Sex: Female
  Weight: 85 kg

DRUGS (1)
  1. HUMIRA [Suspect]
     Active Substance: ADALIMUMAB
     Indication: Hidradenitis
     Route: 058
     Dates: start: 20191120, end: 20220210

REACTIONS (9)
  - Breast inflammation [Recovering/Resolving]
  - Breast enlargement [Recovering/Resolving]
  - Breast mass [Recovered/Resolved]
  - Inflammation [Recovered/Resolved]
  - Feeling hot [Recovering/Resolving]
  - Pyrexia [Recovered/Resolved]
  - Cellulitis [Not Recovered/Not Resolved]
  - Hidradenitis [Recovering/Resolving]
  - Erythema [Recovering/Resolving]

NARRATIVE: CASE EVENT DATE: 20200101
